FAERS Safety Report 7409932-3 (Version None)
Quarter: 2011Q2

REPORT INFORMATION
  Report Type: 
  Country: None (occurrence: None)
  Receive Date: 20110412
  Receipt Date: 20110314
  Transmission Date: 20111010
  Serious: Yes (Other)
  Sender: FDA-Public Use
  Company Number: PHHY2011GB22195

PATIENT
  Age: 70 Year
  Sex: Male
  Weight: 92 kg

DRUGS (5)
  1. ROPINIROLE [Interacting]
     Indication: PARKINSON'S DISEASE
     Dosage: 2 MG, 5QD
  2. VIAGRA [Interacting]
     Indication: ERECTILE DYSFUNCTION
     Dosage: 50 MG
     Route: 048
  3. STALEVO 100 [Suspect]
     Indication: PARKINSON'S DISEASE
     Dosage: 150/37.5/200, FIVE TIMES DAILY
  4. PROPRANOLOL [Concomitant]
     Indication: PARKINSON'S DISEASE
     Dosage: 10 MG, BID
  5. SINEMET [Concomitant]
     Indication: PARKINSON'S DISEASE
     Dosage: 50/12.5; 2/1 DAYS

REACTIONS (2)
  - DRUG INTERACTION [None]
  - PARKINSON'S DISEASE [None]
